FAERS Safety Report 5638631-3 (Version None)
Quarter: 2008Q1

REPORT INFORMATION
  Report Type: 
  Country: None (occurrence: None)
  Receive Date: 20080226
  Receipt Date: 20080219
  Transmission Date: 20080703
  Serious: Yes (Other)
  Sender: FDA-Public Use
  Company Number: US-ELI_LILLY_AND_COMPANY-US200802004853

PATIENT
  Age: 12 Year

DRUGS (2)
  1. OLANZAPINE [Suspect]
     Dosage: 5 MG, DAILY (1/D)
  2. OLANZAPINE [Suspect]
     Dosage: UNK, DAILY (1/D)

REACTIONS (1)
  - NEUTROPENIA [None]
